FAERS Safety Report 5447559-3 (Version None)
Quarter: 2007Q3

REPORT INFORMATION
  Report Type: 
  Country: None (occurrence: None)
  Receive Date: 20070905
  Receipt Date: 20070824
  Transmission Date: 20080115
  Serious: Yes (Hospitalization)
  Sender: FDA-Public Use
  Company Number: E2020-01552-SPO-JP

PATIENT
  Age: 89 Year
  Sex: Male

DRUGS (6)
  1. ARICEPT [Suspect]
     Indication: DEMENTIA ALZHEIMER'S TYPE
     Dosage: 5 MG, 1 IN 1 D, ORAL
     Route: 048
     Dates: start: 20061101, end: 20070603
  2. CONIEL                         (BENIDIPINE HYDROCHLORIDE) [Concomitant]
  3. SELBEX                                  (TEPRENONE) [Concomitant]
  4. TAMSULOSIN HCL [Concomitant]
  5. BUFFERIN [Concomitant]
  6. SERMION                            (NICERGOLINE) [Concomitant]

REACTIONS (3)
  - MELAENA [None]
  - OESOPHAGITIS HAEMORRHAGIC [None]
  - REFLUX OESOPHAGITIS [None]
